FAERS Safety Report 5824679-2 (Version None)
Quarter: 2008Q3

REPORT INFORMATION
  Report Type: 
  Country: None (occurrence: None)
  Receive Date: 20080728
  Receipt Date: 20080715
  Transmission Date: 20090109
  Serious: Yes (Other)
  Sender: FDA-Public Use
  Company Number: US-ELI_LILLY_AND_COMPANY-US200806003547

PATIENT
  Age: 21 Year
  Sex: Male
  Weight: 96.599 kg

DRUGS (1)
  1. STRATTERA [Suspect]
     Indication: ATTENTION DEFICIT/HYPERACTIVITY DISORDER
     Dosage: 40 MG, UNK
     Dates: start: 20080402, end: 20080424

REACTIONS (3)
  - CARDIOMYOPATHY [None]
  - HEART RATE IRREGULAR [None]
  - LEFT VENTRICULAR HYPERTROPHY [None]
